FAERS Safety Report 8318589-9 (Version None)
Quarter: 2012Q2

REPORT INFORMATION
  Report Type: 
  Country: None (occurrence: None)
  Receive Date: 20120427
  Receipt Date: 20091001
  Transmission Date: 20120825
  Serious: No
  Sender: FDA-Public Use
  Company Number: US-TEVA-2009009359

PATIENT
  Sex: Male
  Weight: 88.076 kg

DRUGS (1)
  1. NUVIGIL [Suspect]
     Dosage: 150 MILLIGRAM;
     Route: 048
     Dates: start: 20090722, end: 20090821

REACTIONS (1)
  - OROPHARYNGEAL BLISTERING [None]
